FAERS Safety Report 18359868 (Version 6)
Quarter: 2020Q4

REPORT INFORMATION
  Report Type: Spontaneous
  Country: JP (occurrence: JP)
  Receive Date: 20201008
  Receipt Date: 20201123
  Transmission Date: 20210114
  Serious: Yes (Death, Other)
  Sender: FDA-Public Use
  Company Number: JP-PFIZER INC-2020389092

PATIENT
  Age: 92 Year
  Sex: Female
  Weight: 40 kg

DRUGS (20)
  1. OLMETEC [Concomitant]
     Active Substance: OLMESARTAN MEDOXOMIL
     Indication: RENAL IMPAIRMENT
  2. SALSOROITIN-S [Concomitant]
     Indication: OSTEOARTHRITIS
     Dosage: 20 ML, THRICE WEEKLY (MON WED FRI)
     Route: 042
     Dates: start: 20150620, end: 20200902
  3. MECOBALAMIN [Concomitant]
     Active Substance: METHYLCOBALAMIN
     Indication: NEPHROGENIC ANAEMIA
     Dosage: 500 UG, THRICE WEEKLY (MON WED FRI)
     Route: 042
     Dates: start: 20181025, end: 20200902
  4. MAXACALCITOL [Concomitant]
     Active Substance: MAXACALCITOL
     Indication: HYPERPARATHYROIDISM SECONDARY
     Dosage: 2.5 UG, TWICE WEEKLY (MON FRI)
     Route: 042
     Dates: start: 20200125, end: 20200831
  5. ONGLYZA [Concomitant]
     Active Substance: SAXAGLIPTIN HYDROCHLORIDE
     Indication: DIABETES MELLITUS
     Dosage: 2.5 MG, ONCE DAILY, AFTER BREAKFAST
     Route: 048
     Dates: start: 20180426, end: 20200902
  6. PURSENNID [SENNOSIDE A+B CALCIUM] [Concomitant]
     Active Substance: SENNOSIDES A AND B
     Indication: CONSTIPATION
     Dosage: 12 MG, ONCE DAILY, AFTER DINNER
     Route: 048
     Dates: start: 20141128, end: 20200902
  7. RIONA [Concomitant]
     Active Substance: FERRIC CITRATE ANHYDROUS
     Indication: HYPERPARATHYROIDISM SECONDARY
  8. ALPROSTADIL. [Concomitant]
     Active Substance: ALPROSTADIL
     Indication: SKIN ULCER
  9. PARSABIV [Concomitant]
     Active Substance: ETELCALCETIDE HYDROCHLORIDE
     Indication: HYPERPARATHYROIDISM SECONDARY
     Dosage: 2.5 MG, THRICE WEEKLY (MON WED FRI)
     Route: 042
     Dates: start: 20191024, end: 20200902
  10. RIONA [Concomitant]
     Active Substance: FERRIC CITRATE ANHYDROUS
     Indication: NEPHROGENIC ANAEMIA
     Dosage: 250 MG, THRICE DAILY, AFTER EACH MEAL, NON-DIALYSIS DAY
     Route: 048
     Dates: start: 20170413, end: 20200901
  11. L CARTIN FF [Concomitant]
     Active Substance: LEVOCARNITINE
     Indication: NEPHROGENIC ANAEMIA
     Dosage: 1000 MG, THRICE WEEKLY (MON WED FRI)
     Route: 042
     Dates: start: 20180615, end: 20200902
  12. DARBEPOETIN ALFA [Concomitant]
     Active Substance: DARBEPOETIN ALFA
     Indication: NEPHROGENIC ANAEMIA
     Dosage: 5 UG-60 UG, ONCE WEEKLY
     Route: 042
     Dates: start: 20190824, end: 20200824
  13. KIDMIN [AMINO ACIDS NOS] [Concomitant]
     Dosage: 200 ML/H, UNKNOWN FREQ.
     Route: 041
     Dates: start: 20200902
  14. CELECOX [Suspect]
     Active Substance: CELECOXIB
     Indication: OSTEOARTHRITIS
     Dosage: 100 MG, 1X/DAY (ONCE DAILY, AFTER DINNER)
     Route: 048
     Dates: start: 20190521, end: 20200902
  15. EVRENZO [Suspect]
     Active Substance: ROXADUSTAT
     Indication: NEPHROGENIC ANAEMIA
     Dosage: 100 MG, THRICE WEEKLY (MON WED FRI)
     Route: 048
     Dates: start: 20200828, end: 20200902
  16. OLMETEC [Concomitant]
     Active Substance: OLMESARTAN MEDOXOMIL
     Indication: END STAGE RENAL DISEASE
     Dosage: 5 MG, ONCE DAILY, AFTER DINNER
     Route: 048
     Dates: start: 20200831, end: 20200902
  17. METLIGINE D [Concomitant]
     Indication: CARDIAC FAILURE
     Dosage: 2 MG, BEFORE DIALYSIS
     Route: 048
     Dates: start: 20170914, end: 20200902
  18. ALPROSTADIL. [Concomitant]
     Active Substance: ALPROSTADIL
     Indication: DIABETES MELLITUS
     Dosage: 10 UG, THRICE WEEKLY (MON WED FRI)
     Route: 042
     Dates: start: 20180615, end: 20200902
  19. XENON [Concomitant]
     Active Substance: XENON\XENON XE-133
     Dosage: UNK UNK, UNKNOWN FREQ.
     Route: 065
     Dates: start: 20200828
  20. RISUMIC [Concomitant]
     Active Substance: AMEZINIUM METILSULFATE
     Indication: CARDIAC FAILURE
     Dosage: 10 MG, BEFORE DIALYSIS
     Route: 048
     Dates: start: 20170817, end: 20200902

REACTIONS (16)
  - Off label use [Unknown]
  - Blood phosphorus increased [Unknown]
  - Heart rate decreased [Unknown]
  - Mean cell volume increased [Unknown]
  - Platelet count decreased [Unknown]
  - Cardiac failure [Fatal]
  - Blood creatine phosphokinase decreased [Unknown]
  - Beta 2 microglobulin increased [Unknown]
  - White blood cell count decreased [Unknown]
  - Respiratory failure [Fatal]
  - Alanine aminotransferase decreased [Unknown]
  - Blood alkaline phosphatase increased [Unknown]
  - Blood potassium decreased [Unknown]
  - Pneumonia [Fatal]
  - Blood bilirubin decreased [Unknown]
  - Blood cholinesterase decreased [Unknown]

NARRATIVE: CASE EVENT DATE: 20190521
